FAERS Safety Report 8523355-5 (Version None)
Quarter: 2012Q3

REPORT INFORMATION
  Report Type: 
  Country: None (occurrence: None)
  Receive Date: 20120720
  Receipt Date: 20120713
  Transmission Date: 20120928
  Serious: Yes (Other)
  Sender: FDA-Public Use
  Company Number: JP-SANOFI-AVENTIS-2012SA045736

PATIENT
  Age: 63 Year
  Sex: Male

DRUGS (8)
  1. INSULIN DETEMIR [Suspect]
     Indication: TYPE 2 DIABETES MELLITUS
     Route: 058
  2. LANTUS [Suspect]
     Dosage: MULTIPLE  INJECTIONS
     Route: 058
  3. INSULIN DETEMIR [Suspect]
     Dosage: MULTIPLE  INJECTIONS
     Route: 058
  4. LANTUS [Suspect]
     Dosage: MULTIPLE  INJECTIONS
     Route: 058
  5. LANTUS [Suspect]
     Indication: SUICIDE ATTEMPT
     Route: 058
  6. INSULIN DETEMIR [Suspect]
     Indication: SUICIDE ATTEMPT
     Route: 058
  7. LANTUS [Suspect]
     Indication: TYPE 2 DIABETES MELLITUS
     Route: 058
  8. INSULIN DETEMIR [Suspect]
     Dosage: MULTIPLE  INJECTIONS
     Route: 058

REACTIONS (5)
  - SUICIDE ATTEMPT [None]
  - HYPOGLYCAEMIA [None]
  - ALTERED STATE OF CONSCIOUSNESS [None]
  - DELIRIUM [None]
  - INTENTIONAL OVERDOSE [None]
